FAERS Safety Report 17115946 (Version 2)
Quarter: 2019Q4

REPORT INFORMATION
  Report Type: Spontaneous
  Country: RO (occurrence: RO)
  Receive Date: 20191205
  Receipt Date: 20191217
  Transmission Date: 20200122
  Serious: Yes (Hospitalization, Other)
  Sender: FDA-Public Use
  Company Number: RO-PFIZER INC-2019524080

PATIENT
  Age: 62 Year
  Sex: Female

DRUGS (5)
  1. LOKREN [Concomitant]
     Active Substance: BETAXOLOL HYDROCHLORIDE
     Indication: HYPERTENSION
     Dosage: 20 MG, DAILY
  2. AMIODARONE HCL [Suspect]
     Active Substance: AMIODARONE HYDROCHLORIDE
     Indication: VENTRICULAR ARRHYTHMIA
     Dosage: 200 MG, DAILY
  3. PRESTARIUM [PERINDOPRIL ARGININE] [Concomitant]
     Active Substance: PERINDOPRIL ARGININE
     Indication: VENTRICULAR ARRHYTHMIA
  4. PRESTARIUM [PERINDOPRIL ARGININE] [Concomitant]
     Active Substance: PERINDOPRIL ARGININE
     Indication: HYPERTENSION
     Dosage: 5 MG, DAILY
  5. LOKREN [Concomitant]
     Active Substance: BETAXOLOL HYDROCHLORIDE
     Indication: VENTRICULAR ARRHYTHMIA

REACTIONS (7)
  - Pulmonary embolism [Recovering/Resolving]
  - Cough [Recovering/Resolving]
  - Pulmonary toxicity [Recovering/Resolving]
  - Dyspnoea [Recovering/Resolving]
  - Pulmonary fibrosis [Recovering/Resolving]
  - Respiratory failure [Recovering/Resolving]
  - Pyrexia [Recovering/Resolving]
